FAERS Safety Report 6257611-0 (Version None)
Quarter: 2009Q3

REPORT INFORMATION
  Report Type: 
  Country: None (occurrence: None)
  Receive Date: 20090706
  Receipt Date: 20090629
  Transmission Date: 20100115
  Serious: Yes (Hospitalization)
  Sender: FDA-Public Use
  Company Number: BR-ELI_LILLY_AND_COMPANY-BR200906006873

PATIENT
  Sex: Female
  Weight: 55 kg

DRUGS (4)
  1. FORTEO [Suspect]
     Indication: OSTEOPOROSIS
     Dosage: 20 UG, DAILY (1/D)
     Route: 058
     Dates: start: 20081012
  2. PREDNISONE [Concomitant]
     Indication: ARTHRITIS
     Dosage: 2.5 MG, DAILY (1/D)
     Route: 048
  3. TYLEX [Concomitant]
     Indication: PAIN
     Dosage: 30 MG, DAILY (1/D)
     Route: 048
  4. LEFLUNOMIDE [Concomitant]
     Indication: DYSPNOEA
     Dosage: 12 UG, 2/D
     Route: 065

REACTIONS (2)
  - ANAEMIA [None]
  - URINARY TRACT INFECTION [None]
